FAERS Safety Report 18361822 (Version 1)
Quarter: 2020Q4

REPORT INFORMATION
  Report Type: Spontaneous
  Country: ES (occurrence: ES)
  Receive Date: 20201008
  Receipt Date: 20201008
  Transmission Date: 20210114
  Serious: Yes (Other)
  Sender: FDA-Public Use
  Company Number: NVSC2020ES265283

PATIENT
  Age: 94 Year
  Sex: Male

DRUGS (2)
  1. COLCHICINE. [Interacting]
     Active Substance: COLCHICINE
     Indication: GOUTY ARTHRITIS
     Dosage: 0.5 MILLIGRAM DAILY; HAS STARTED 1 MONTH PRIOR TO PRESENTATION
     Route: 065
  2. ATORVASTATIN [Suspect]
     Active Substance: ATORVASTATIN
     Indication: DYSLIPIDAEMIA
     Dosage: 40 MILLIGRAM DAILY; HAD BEEN RECEIVING FOR 5 YEARS
     Route: 065

REACTIONS (4)
  - Gait inability [Recovering/Resolving]
  - Myopathy toxic [Recovering/Resolving]
  - Renal impairment [Recovered/Resolved]
  - Drug interaction [Unknown]
